FAERS Safety Report 8699722 (Version 2)
Quarter: 2012Q4

REPORT INFORMATION
  Report Type: 
  Country: FR (occurrence: FR)
  Receive Date: 20120802
  Receipt Date: 20120910
  Transmission Date: 20130627
  Serious: Yes (Hospitalization)
  Sender: FDA-Public Use
  Company Number: FR-GLAXOSMITHKLINE-B0818467A

PATIENT
  Age: 51 None
  Sex: Female
  Weight: 55 kg

DRUGS (2)
  1. LAMICTAL [Suspect]
     Indication: MIGRAINE
     Route: 048
     Dates: start: 20120619, end: 20120710
  2. CLAMOXYL [Concomitant]
     Indication: PYREXIA
     Route: 065
     Dates: start: 20120710

REACTIONS (13)
  - Drug reaction with eosinophilia and systemic symptoms [Recovering/Resolving]
  - Rash [Recovering/Resolving]
  - Hepatocellular injury [Recovering/Resolving]
  - Eosinophilia [Recovering/Resolving]
  - Lymphocytosis [Recovering/Resolving]
  - Pyrexia [Recovered/Resolved]
  - Musculoskeletal stiffness [Recovering/Resolving]
  - Oropharyngeal pain [Recovering/Resolving]
  - Face oedema [Recovering/Resolving]
  - General physical health deterioration [Recovering/Resolving]
  - Lymphadenopathy [Recovering/Resolving]
  - Cough [Recovering/Resolving]
  - Off label use [Unknown]
